FAERS Safety Report 18278040 (Version 1)
Quarter: 2020Q3

REPORT INFORMATION
  Report Type: Spontaneous
  Country: US (occurrence: US)
  Receive Date: 20200916
  Receipt Date: 20200916
  Transmission Date: 20201103
  Serious: Yes (Hospitalization)
  Sender: FDA-Public Use
  Company Number: None

PATIENT
  Age: 57 Year
  Sex: Female

DRUGS (1)
  1. FULPHILA [Suspect]
     Active Substance: PEGFILGRASTIM-JMDB
     Indication: LUNG NEOPLASM MALIGNANT
     Dosage: 1 SYR 24HR AFTER EACH CHEMO INFUSION SQ
     Route: 058

REACTIONS (1)
  - Hospitalisation [None]

NARRATIVE: CASE EVENT DATE: 20200907
